FAERS Safety Report 4375200-X (Version None)
Quarter: 2004Q2

REPORT INFORMATION
  Report Type: 
  Country: None (occurrence: None)
  Receive Date: 20040607
  Receipt Date: 20030729
  Transmission Date: 20050107
  Serious: Yes (Disabling)
  Sender: FDA-Public Use
  Company Number: 343770

PATIENT
  Age: 17 Year
  Sex: Male

DRUGS (1)
  1. ACCUTANE [Suspect]
     Indication: ACNE CYSTIC
     Dosage: 2 PER DAY ORAL
     Route: 048
     Dates: start: 20021216, end: 20030724

REACTIONS (4)
  - ADVERSE EVENT [None]
  - INGROWING NAIL [None]
  - OEDEMA PERIPHERAL [None]
  - PARONYCHIA [None]
